FAERS Safety Report 10108570 (Version 1)
Quarter: 2014Q2

REPORT INFORMATION
  Report Type: Spontaneous
  Country: CA (occurrence: CA)
  Receive Date: 20140425
  Receipt Date: 20140425
  Transmission Date: 20141212
  Serious: Yes (Other)
  Sender: FDA-Public Use
  Company Number: CA-PFIZER INC-2014111466

PATIENT
  Age: 50 Year
  Sex: Male
  Weight: 29 kg

DRUGS (2)
  1. IBUPROFEN [Suspect]
     Dosage: UNK
     Route: 048
  2. NAPROXEN [Suspect]
     Dosage: UNK
     Route: 048

REACTIONS (9)
  - Duodenal ulcer [Unknown]
  - Alcohol abuse [Unknown]
  - Alcoholic hangover [Unknown]
  - Asthenia [Unknown]
  - Dizziness [Unknown]
  - Faeces discoloured [Unknown]
  - Haemoglobin decreased [Unknown]
  - Haemoglobin increased [Unknown]
  - Palpitations [Unknown]
